FAERS Safety Report 5391986-X (Version None)
Quarter: 2007Q3

REPORT INFORMATION
  Report Type: 
  Country: None (occurrence: None)
  Receive Date: 20070720
  Receipt Date: 20070710
  Transmission Date: 20080115
  Serious: Yes (Hospitalization)
  Sender: FDA-Public Use
  Company Number: US-JNJFOC-20070702616

PATIENT
  Sex: Male
  Weight: 67.59 kg

DRUGS (5)
  1. FENTANYL TRANSDERMAL SYSTEM [Suspect]
     Route: 062
  2. FENTANYL TRANSDERMAL SYSTEM [Suspect]
     Route: 062
  3. FENTANYL TRANSDERMAL SYSTEM [Suspect]
     Indication: BACK PAIN
     Route: 062
  4. FLEXERIL [Concomitant]
     Indication: MUSCLE SPASMS
     Route: 048
  5. TRAZODONE HCL [Concomitant]
     Dosage: TAKEN IN EVENING
     Route: 048

REACTIONS (4)
  - CARDIAC SEPTAL DEFECT [None]
  - DRUG INEFFECTIVE [None]
  - THROMBOSIS [None]
  - WRONG TECHNIQUE IN DRUG USAGE PROCESS [None]
